FAERS Safety Report 4427201-0 (Version None)
Quarter: 2004Q3

REPORT INFORMATION
  Report Type: 
  Country: None (occurrence: None)
  Receive Date: 20040726
  Receipt Date: 20040414
  Transmission Date: 20050211
  Serious: No
  Sender: FDA-Public Use
  Company Number: USA030638940

PATIENT
  Age: 77 Year
  Sex: Female
  Weight: 44 kg

DRUGS (1)
  1. FORTEO [Suspect]
     Indication: OSTEOPOROSIS
     Dosage: 20 UG/DAY
     Dates: start: 20030506

REACTIONS (3)
  - INJECTION SITE PAIN [None]
  - NAUSEA [None]
  - STOMACH DISCOMFORT [None]
